FAERS Safety Report 26105547 (Version 1)
Quarter: 2025Q4

REPORT INFORMATION
  Report Type: Spontaneous
  Country: EU (occurrence: EU)
  Receive Date: 20251201
  Receipt Date: 20251201
  Transmission Date: 20260118
  Serious: Yes (Other)
  Sender: ALEXION PHARMACEUTICALS
  Company Number: EU-EMA-DD-20251114-7482675-092413

PATIENT
  Sex: Female
  Weight: 48 kg

DRUGS (3)
  1. FASLODEX [Suspect]
     Active Substance: FULVESTRANT
     Dosage: UNK
     Dates: start: 20210930, end: 20220623
  2. FASLODEX [Suspect]
     Active Substance: FULVESTRANT
  3. TRASTUZUMAB DERUXTECAN [Suspect]
     Active Substance: TRASTUZUMAB DERUXTECAN
     Indication: Breast cancer
     Dosage: 5.5 MILLIGRAM/KILOGRAM
     Route: 065

REACTIONS (5)
  - Malignant neoplasm progression [Unknown]
  - Renal disorder [Unknown]
  - Red blood cell count decreased [Unknown]
  - Haemoglobin decreased [Unknown]
  - Off label use [Unknown]
